FAERS Safety Report 9745357 (Version 1)
Quarter: 2013Q4

REPORT INFORMATION
  Report Type: Spontaneous
  Country: US (occurrence: US)
  Receive Date: 20131211
  Receipt Date: 20131211
  Transmission Date: 20140711
  Serious: Yes (Hospitalization, Other)
  Sender: FDA-Public Use
  Company Number: US-SA-2013SA128711

PATIENT
  Sex: Female

DRUGS (2)
  1. MINIRIN/DDAVP [Suspect]
     Indication: DIABETES INSIPIDUS
     Route: 045
  2. MINIRIN/DDAVP [Suspect]
     Indication: DIABETES INSIPIDUS
     Route: 048

REACTIONS (3)
  - Application site scar [Unknown]
  - Nasal ulcer [Unknown]
  - Drug ineffective [Unknown]
